FAERS Safety Report 8007600-0 (Version None)
Quarter: 2011Q4

REPORT INFORMATION
  Report Type: 
  Country: None (occurrence: None)
  Receive Date: 20111227
  Receipt Date: 20111216
  Transmission Date: 20120403
  Serious: Yes (Hospitalization)
  Sender: FDA-Public Use
  Company Number: US-BAYER-201022272NA

PATIENT
  Age: 40 Year
  Sex: Female
  Weight: 107.3 kg

DRUGS (13)
  1. SELECTIVE IMMUNOSUPPRESSIVE AGENTS [Concomitant]
  2. POLY-CITRA CRYSTALS [Concomitant]
     Dosage: UNK
     Dates: start: 20071205
  3. PERCOCET [Concomitant]
  4. CELEBREX [Concomitant]
     Dosage: 400 MG, QD
     Route: 048
     Dates: start: 20071205, end: 20080418
  5. LOTREL [Concomitant]
     Dosage: UNK
     Route: 048
     Dates: start: 20071205, end: 20080418
  6. ALLOPURINOL [Concomitant]
     Dosage: 100 MG, QD
     Route: 048
     Dates: start: 20071205, end: 20080418
  7. YASMIN [Suspect]
     Indication: CONTRACEPTION
     Dosage: UNK
     Route: 048
     Dates: start: 20060301, end: 20090901
  8. ZYRTEC [Concomitant]
     Dosage: UNK
     Dates: start: 20071205
  9. KINERET [Concomitant]
     Dosage: UNK
     Dates: start: 20071205, end: 20080418
  10. MINOCYCLINE HCL [Concomitant]
     Dosage: UNK
     Dates: start: 20071205, end: 20080418
  11. LUNESTA [Concomitant]
     Dosage: UNK
     Dates: start: 20071205
  12. PRILOSEC [Concomitant]
     Dosage: UNK
     Dates: start: 20071205, end: 20080418
  13. PREDNISONE TAB [Concomitant]
     Dosage: UNK
     Dates: start: 20071205, end: 20080418

REACTIONS (3)
  - DEEP VEIN THROMBOSIS [None]
  - PAIN [None]
  - THROMBOSIS [None]
